FAERS Safety Report 16251769 (Version 3)
Quarter: 2019Q3

REPORT INFORMATION
  Report Type: Report from Study
  Country: AR (occurrence: AR)
  Receive Date: 20190429
  Receipt Date: 20190916
  Transmission Date: 20191004
  Serious: Yes (Hospitalization, Other)
  Sender: FDA-Public Use
  Company Number: AR-NOVOPROD-658730

PATIENT
  Age: 7 Year
  Sex: Female
  Weight: 19.8 kg

DRUGS (1)
  1. NORDITROPIN [Suspect]
     Active Substance: SOMATROPIN
     Indication: TURNER^S SYNDROME
     Dosage: 0.90 MG, QD
     Route: 058
     Dates: start: 20190211, end: 20190311

REACTIONS (2)
  - Optic disc haemorrhage [Recovered/Resolved]
  - Idiopathic intracranial hypertension [Recovered/Resolved]

NARRATIVE: CASE EVENT DATE: 20190304
